FAERS Safety Report 7977007-0 (Version None)
Quarter: 2011Q4

REPORT INFORMATION
  Report Type: 
  Country: None (occurrence: None)
  Receive Date: 20111213
  Receipt Date: 20111113
  Transmission Date: 20120403
  Serious: No
  Sender: FDA-Public Use
  Company Number: US-AMGEN-USASP2011034855

PATIENT
  Age: 43 Year
  Sex: Female
  Weight: 68.027 kg

DRUGS (5)
  1. CYCLOBENZAPRINE [Concomitant]
     Indication: CHEST PAIN
     Dosage: UNK
  2. ENBREL [Suspect]
     Indication: ANKYLOSING SPONDYLITIS
     Dosage: 50 MG, QWK
     Route: 058
     Dates: start: 20101101, end: 20110917
  3. HYDROCODONE [Concomitant]
     Indication: CHEST PAIN
     Dosage: UNK
  4. WELLBUTRIN [Concomitant]
     Indication: DEPRESSION
  5. VITAMIN D [Concomitant]
     Indication: DEPRESSION
     Dosage: UNK

REACTIONS (2)
  - MENORRHAGIA [None]
  - ENDOMETRIAL HYPERTROPHY [None]
